FAERS Safety Report 5168439-7 (Version None)
Quarter: 2006Q4

REPORT INFORMATION
  Report Type: 
  Country: None (occurrence: None)
  Receive Date: 20061208
  Receipt Date: 20061002
  Transmission Date: 20070319
  Serious: Yes (Other)
  Sender: FDA-Public Use
  Company Number: CH-NOVOPROD-257503

PATIENT
  Age: 59 Year
  Sex: Female
  Weight: 64 kg

DRUGS (2)
  1. ESTROFEM [Suspect]
     Indication: HOT FLUSH
     Dosage: 2 MG, UNK
     Dates: start: 20060917, end: 20060923
  2. ESTROFEM [Suspect]
     Dosage: 2 MG, UNK

REACTIONS (3)
  - DEAFNESS [None]
  - DEAFNESS UNILATERAL [None]
  - INFECTION [None]
